FAERS Safety Report 14727187 (Version 2)
Quarter: 2018Q4

REPORT INFORMATION
  Report Type: Spontaneous
  Country: US (occurrence: US)
  Receive Date: 20180406
  Receipt Date: 20181217
  Transmission Date: 20190204
  Serious: Yes (Hospitalization, Other)
  Sender: FDA-Public Use
  Company Number: US-GLAXOSMITHKLINE-US2018GSK058785

PATIENT
  Sex: Male

DRUGS (2)
  1. PREVACID [Suspect]
     Active Substance: LANSOPRAZOLE
     Indication: PRODUCT USED FOR UNKNOWN INDICATION
     Dosage: UNK
     Route: 065
  2. PREVACID [Suspect]
     Active Substance: LANSOPRAZOLE
     Indication: PRODUCT USED FOR UNKNOWN INDICATION
     Dosage: UNK
     Route: 065

REACTIONS (12)
  - Chronic kidney disease [Unknown]
  - Diabetic nephropathy [Unknown]
  - Proteinuria [Unknown]
  - Acute kidney injury [Unknown]
  - End stage renal disease [Unknown]
  - Device dependence [Unknown]
  - Nephrogenic anaemia [Unknown]
  - Dialysis [Unknown]
  - Hypertensive nephropathy [Unknown]
  - Renal cyst [Unknown]
  - Chronic kidney disease-mineral and bone disorder [Unknown]
  - Renal impairment [Unknown]
